FAERS Safety Report 7233639-9 (Version None)
Quarter: 2011Q1

REPORT INFORMATION
  Report Type: 
  Country: None (occurrence: None)
  Receive Date: 20110119
  Receipt Date: 20110113
  Transmission Date: 20110831
  Serious: Yes (Hospitalization)
  Sender: FDA-Public Use
  Company Number: US-MERCK-1101USA01459

PATIENT
  Sex: Female

DRUGS (2)
  1. INSULIN [Concomitant]
     Route: 065
  2. COZAAR [Suspect]
     Route: 048

REACTIONS (2)
  - ORAL DISCOMFORT [None]
  - ADVERSE EVENT [None]
